FAERS Safety Report 7464362-3 (Version None)
Quarter: 2011Q2

REPORT INFORMATION
  Report Type: 
  Country: None (occurrence: None)
  Receive Date: 20110509
  Receipt Date: 20110428
  Transmission Date: 20111010
  Serious: Yes (Hospitalization)
  Sender: FDA-Public Use
  Company Number: BR-MEDIMMUNE-MEDI-0013157

PATIENT
  Sex: Male
  Weight: 2.6 kg

DRUGS (1)
  1. SYNAGIS [Suspect]
     Route: 030
     Dates: start: 20110404, end: 20110404

REACTIONS (7)
  - BRONCHIOLITIS [None]
  - SWELLING [None]
  - COUGH [None]
  - OXYGEN SATURATION DECREASED [None]
  - RESPIRATORY RATE INCREASED [None]
  - DISCOMFORT [None]
  - PNEUMONIA [None]
